FAERS Safety Report 22864448 (Version 2)
Quarter: 2023Q4

REPORT INFORMATION
  Report Type: Spontaneous
  Country: DE (occurrence: DE)
  Receive Date: 20230825
  Receipt Date: 20231222
  Transmission Date: 20240110
  Serious: Yes (Other)
  Sender: FDA-Public Use
  Company Number: DE-ROCHE-2126455

PATIENT
  Age: 38 Year
  Sex: Female
  Weight: 87 kg

DRUGS (4)
  1. KESIMPTA [Suspect]
     Active Substance: OFATUMUMAB
     Indication: Product used for unknown indication
     Dosage: UNK
     Route: 065
  2. SERTRALINE [Suspect]
     Active Substance: SERTRALINE HYDROCHLORIDE
     Indication: Crying
     Dosage: 50 MG
     Route: 065
  3. CHOLECALCIFEROL [Concomitant]
     Active Substance: CHOLECALCIFEROL
     Indication: Product used for unknown indication
     Dosage: 20000 IU, QW
     Route: 065
  4. CHOLECALCIFEROL [Concomitant]
     Active Substance: CHOLECALCIFEROL
     Dosage: 20000.000DF
     Route: 065

REACTIONS (39)
  - Mitral valve incompetence [Unknown]
  - Ocular vascular disorder [Not Recovered/Not Resolved]
  - Circulatory collapse [Recovered/Resolved]
  - Visual field defect [Not Recovered/Not Resolved]
  - Visual impairment [Recovering/Resolving]
  - Panic attack [Recovered/Resolved]
  - Dysphagia [Not Recovered/Not Resolved]
  - Hypoaesthesia [Not Recovered/Not Resolved]
  - Neuralgia [Recovered/Resolved]
  - Fibromyalgia [Unknown]
  - Oropharyngeal pain [Recovered/Resolved]
  - Nasopharyngitis [Recovered/Resolved]
  - Product dispensing error [Unknown]
  - Body temperature increased [Recovered/Resolved]
  - Pain [Recovered/Resolved]
  - Depressed mood [Recovered/Resolved]
  - Pain in extremity [Recovered/Resolved]
  - Inappropriate schedule of product administration [Unknown]
  - Paraesthesia [Not Recovered/Not Resolved]
  - Muscle tightness [Recovered/Resolved]
  - Pyrexia [Recovered/Resolved]
  - Rhinorrhoea [Recovered/Resolved]
  - Memory impairment [Not Recovered/Not Resolved]
  - Vertigo [Recovered/Resolved]
  - Depression [Recovered/Resolved]
  - Sensory disturbance [Not Recovered/Not Resolved]
  - Muscle tightness [Recovered/Resolved]
  - SARS-CoV-2 antibody test negative [Recovered/Resolved]
  - Sleep disorder [Recovered/Resolved]
  - Fatigue [Unknown]
  - Weight increased [Recovering/Resolving]
  - Headache [Recovering/Resolving]
  - Headache [Recovered/Resolved]
  - Chills [Recovered/Resolved]
  - Crying [Recovered/Resolved]
  - Neck pain [Not Recovered/Not Resolved]
  - Neck pain [Not Recovered/Not Resolved]
  - Back pain [Not Recovered/Not Resolved]
  - Fatigue [Recovered/Resolved]

NARRATIVE: CASE EVENT DATE: 20180512
